FAERS Safety Report 5522091-7 (Version None)
Quarter: 2007Q4

REPORT INFORMATION
  Report Type: 
  Country: None (occurrence: None)
  Receive Date: 20071120
  Receipt Date: 20071109
  Transmission Date: 20080405
  Serious: Yes (Other)
  Sender: FDA-Public Use
  Company Number: US-ROCHE-531094

PATIENT

DRUGS (2)
  1. INTERFERON ALFA-2A [Suspect]
     Route: 058
  2. RIBAVIRIN [Suspect]
     Route: 065

REACTIONS (1)
  - TRANSPLANT REJECTION [None]
